FAERS Safety Report 22162835 (Version 1)
Quarter: 2023Q1

REPORT INFORMATION
  Report Type: Spontaneous
  Country: US (occurrence: US)
  Receive Date: 20230331
  Receipt Date: 20230331
  Transmission Date: 20230418
  Serious: Yes (Death, Hospitalization, Other)
  Sender: FDA-Public Use
  Company Number: US-009507513-2303USA010611

PATIENT
  Age: 58 Year
  Sex: Male

DRUGS (1)
  1. ZERBAXA [Suspect]
     Active Substance: CEFTOLOZANE SULFATE\TAZOBACTAM SODIUM
     Dosage: UNK
     Dates: start: 20230226, end: 20230311

REACTIONS (3)
  - Gun shot wound [Fatal]
  - Bacterial test positive [Unknown]
  - Colostomy [Unknown]

NARRATIVE: CASE EVENT DATE: 20230101
